FAERS Safety Report 20002049 (Version 1)
Quarter: 2021Q4

REPORT INFORMATION
  Report Type: Spontaneous
  Country: US (occurrence: US)
  Receive Date: 20211027
  Receipt Date: 20211027
  Transmission Date: 20220303
  Serious: Yes (Hospitalization)
  Sender: FDA-Public Use
  Company Number: US-LUPIN PHARMACEUTICALS INC.-2021-20702

PATIENT
  Age: 82 Year
  Sex: Male

DRUGS (6)
  1. AZITHROMYCIN ANHYDROUS [Suspect]
     Active Substance: AZITHROMYCIN ANHYDROUS
     Indication: Pneumonia bacterial
     Dosage: UNK
     Route: 048
  2. AZITHROMYCIN ANHYDROUS [Suspect]
     Active Substance: AZITHROMYCIN ANHYDROUS
     Indication: Mycobacterium avium complex infection
  3. RIFAMPIN [Suspect]
     Active Substance: RIFAMPIN
     Indication: Pneumonia bacterial
     Dosage: UNK
     Route: 048
  4. RIFAMPIN [Suspect]
     Active Substance: RIFAMPIN
     Indication: Mycobacterium avium complex infection
  5. AMIKACIN [Suspect]
     Active Substance: AMIKACIN
     Indication: Pneumonia bacterial
     Dosage: UNK
  6. AMIKACIN [Suspect]
     Active Substance: AMIKACIN
     Indication: Mycobacterium avium complex infection

REACTIONS (2)
  - Drug ineffective for unapproved indication [Unknown]
  - Off label use [None]
